FAERS Safety Report 5018486-0 (Version None)
Quarter: 2006Q2

REPORT INFORMATION
  Report Type: 
  Country: None (occurrence: None)
  Receive Date: 20060530
  Receipt Date: 20050418
  Transmission Date: 20061013
  Serious: Yes (Other)
  Sender: FDA-Public Use
  Company Number: 2005062929

PATIENT
  Sex: Male
  Weight: 78 kg

DRUGS (2)
  1. LYRICA [Suspect]
     Indication: NEURALGIA
     Dosage: 150 MG (75 MG, 2 IN 1 D), ORAL
     Route: 048
     Dates: start: 20050401, end: 20050404
  2. TRAMADOL HCL [Concomitant]

REACTIONS (3)
  - DYSPHONIA [None]
  - SWELLING FACE [None]
  - SWOLLEN TONGUE [None]
